FAERS Safety Report 8845936 (Version 2)
Quarter: 2012Q4

REPORT INFORMATION
  Report Type: 
  Country: CA (occurrence: CA)
  Receive Date: 20121017
  Receipt Date: 20121121
  Transmission Date: 20130627
  Serious: Yes (Hospitalization, Other)
  Sender: FDA-Public Use
  Company Number: CA-ROCHE-1145530

PATIENT
  Age: 49 Year
  Sex: Male
  Weight: 69.3 kg

DRUGS (12)
  1. AVASTIN [Suspect]
     Indication: COLON CANCER
     Route: 042
     Dates: start: 20120918, end: 20121002
  2. OXALIPLATIN [Concomitant]
     Indication: COLON CANCER
     Route: 065
     Dates: start: 20120918, end: 20121002
  3. 5-FU [Concomitant]
     Indication: COLON CANCER
     Route: 065
     Dates: start: 20120918, end: 20121002
  4. 5-FU [Concomitant]
     Route: 065
     Dates: start: 20121016
  5. LEUCOVORIN [Concomitant]
     Indication: COLON CANCER
     Route: 065
     Dates: start: 20120918, end: 20121002
  6. LEUCOVORIN [Concomitant]
     Route: 065
     Dates: start: 20121016
  7. METOCLOPRAMIDE [Concomitant]
     Route: 048
  8. DECADRON [Concomitant]
     Route: 048
  9. SENNOSIDES [Concomitant]
     Route: 048
  10. DOCUSATE [Concomitant]
     Route: 048
  11. PANTOLOC [Concomitant]
     Route: 065
  12. LORAZEPAM [Concomitant]
     Route: 065

REACTIONS (3)
  - Posterior reversible encephalopathy syndrome [Not Recovered/Not Resolved]
  - Partial seizures [Recovered/Resolved]
  - Condition aggravated [Unknown]
